FAERS Safety Report 7202143-6 (Version None)
Quarter: 2010Q4

REPORT INFORMATION
  Report Type: 
  Country: None (occurrence: None)
  Receive Date: 20101229
  Receipt Date: 20101215
  Transmission Date: 20110411
  Serious: Yes (Other)
  Sender: FDA-Public Use
  Company Number: PHHY2010IT86777

PATIENT
  Age: 39 Year
  Sex: Male

DRUGS (1)
  1. EXJADE [Suspect]

REACTIONS (2)
  - GASTRIC ULCER PERFORATION [None]
  - PERITONITIS [None]
